FAERS Safety Report 6269530-4 (Version None)
Quarter: 2009Q3

REPORT INFORMATION
  Report Type: 
  Country: None (occurrence: None)
  Receive Date: 20090715
  Receipt Date: 20090615
  Transmission Date: 20100115
  Serious: No
  Sender: FDA-Public Use
  Company Number: US-TYCO HEALTHCARE/MALLINCKRODT-T200901207

PATIENT
  Sex: Male

DRUGS (2)
  1. OXYCODONE HCL [Suspect]
     Indication: BACK PAIN
     Dosage: 30 MG, 1-2 TIMES/DAY, PRN
     Route: 048
     Dates: start: 20090101
  2. MOTRIN [Concomitant]
     Indication: BREAKTHROUGH PAIN
     Dosage: UNK
     Route: 048

REACTIONS (3)
  - DRUG INEFFECTIVE [None]
  - FLUSHING [None]
  - PRURITUS GENERALISED [None]
